FAERS Safety Report 7069366-0 (Version None)
Quarter: 2010Q4

REPORT INFORMATION
  Report Type: 
  Country: None (occurrence: None)
  Receive Date: 20101028
  Receipt Date: 20101028
  Transmission Date: 20110411
  Serious: Yes (Hospitalization)
  Sender: FDA-Public Use
  Company Number: TH-ABBOTT-10P-155-0681352-00

PATIENT
  Age: 4 Year
  Sex: Female
  Weight: 14.9 kg

DRUGS (6)
  1. KLACID GRANULES FOR ORAL SUSPENSION [Suspect]
     Indication: ANTI-INFECTIVE THERAPY
     Route: 048
     Dates: start: 20091115, end: 20091116
  2. IBUPROFEN [Concomitant]
     Indication: PYREXIA
     Route: 048
     Dates: start: 20091115
  3. IBUPROFEN [Concomitant]
     Indication: PROPHYLAXIS
  4. SALBUTAMOL [Concomitant]
     Indication: BRONCHOSPASM
     Route: 048
     Dates: start: 20091115
  5. SALBUTAMOL [Concomitant]
     Dosage: 0.5ML IN NSS 2.5 ML TID, NEBULISER
     Dates: start: 20091115
  6. AMBROXOL [Concomitant]
     Indication: INCREASED VISCOSITY OF BRONCHIAL SECRETION
     Route: 048
     Dates: start: 20091115

REACTIONS (3)
  - ASTHMA [None]
  - DRUG INEFFECTIVE [None]
  - PNEUMONIA VIRAL [None]
